FAERS Safety Report 9391591 (Version 2)
Quarter: 2013Q4

REPORT INFORMATION
  Report Type: Spontaneous
  Country: FR (occurrence: FR)
  Receive Date: 20130709
  Receipt Date: 20131017
  Transmission Date: 20140711
  Serious: Yes (Life-Threatening, Hospitalization)
  Sender: FDA-Public Use
  Company Number: FR-PFIZER INC-2013197769

PATIENT
  Age: 57 Year
  Sex: Male

DRUGS (22)
  1. ZYVOXID [Suspect]
     Indication: NOCARDIOSIS
     Dosage: 600 MG, 2X/DAY
     Route: 048
     Dates: start: 201305, end: 20130607
  2. CELLCEPT [Concomitant]
     Dosage: 250 MG, 2X/DAY
     Route: 048
     Dates: end: 20130607
  3. ADVAGRAF [Concomitant]
     Dosage: 1.5 MG, DAILY
     Route: 048
     Dates: end: 20130606
  4. ADVAGRAF [Concomitant]
     Dosage: 1 MG, DAILY
     Route: 048
     Dates: start: 20130607
  5. CEFTRIAXONE [Concomitant]
     Indication: NOCARDIOSIS
     Dosage: UNK
     Dates: start: 201304
  6. BACTRIM [Concomitant]
     Indication: NOCARDIOSIS
     Dosage: UNK
     Dates: start: 201304
  7. SOLUPRED [Concomitant]
     Dosage: 10 MG, DAILY
  8. TAHOR [Concomitant]
     Dosage: 20 MG, DAILY
  9. VFEND [Concomitant]
     Dosage: 200 MG, 2X/DAY
  10. AMLOR [Concomitant]
     Dosage: 5 MG, DAILY
  11. CORDARONE [Concomitant]
     Dosage: 200 MG, DAILY
  12. ARANESP [Concomitant]
     Dosage: 40 UG, WEEKLY
     Dates: end: 20130601
  13. ARANESP [Concomitant]
     Dosage: 60 UG, WEEKLY
     Dates: start: 20130602, end: 20130606
  14. ARANESP [Concomitant]
     Dosage: 150 UG, WEEKLY
     Dates: start: 20130607
  15. KARDEGIC [Concomitant]
     Dosage: 75 MG, DAILY
  16. TRINITRINE [Concomitant]
     Dosage: 10 MG, DAILY
  17. NOVONORM [Concomitant]
     Dosage: 0.5 MG IN THE MORNING AND 1 MG AT NOON AND EVENING
  18. INEXIUM [Concomitant]
     Dosage: 20 MG, DAILY
  19. FUROSEMIDE [Concomitant]
     Dosage: 40 MG, DAILY
  20. CARDENSIEL [Concomitant]
     Dosage: 2.5 MG, DAILY
  21. COUMADINE [Concomitant]
     Dosage: 2 MG, DAILY
  22. MAG 2 [Concomitant]

REACTIONS (2)
  - Pulmonary oedema [Recovered/Resolved]
  - Anaemia [Recovered/Resolved]
